FAERS Safety Report 25807221 (Version 1)
Quarter: 2025Q3

REPORT INFORMATION
  Report Type: Spontaneous
  Country: US (occurrence: None)
  Receive Date: 20250915
  Receipt Date: 20250915
  Transmission Date: 20251021
  Serious: Yes (Other)
  Sender: FDA-CTU
  Company Number: None

PATIENT
  Sex: Female

DRUGS (6)
  1. KESIMPTA [Suspect]
     Active Substance: OFATUMUMAB
     Indication: Multiple sclerosis
     Route: 058
     Dates: start: 20221115
  2. AMITRIPTYLIN TAB 100MG [Concomitant]
  3. ESTROVEN TAB MOOD/MEM [Concomitant]
  4. LEVOTHYROXIN TAB 100MCG [Concomitant]
  5. NASACORT AQ AER 55MCG/AC [Concomitant]
  6. TEMAZEPAM CAP 15MG [Concomitant]

REACTIONS (2)
  - Neoplasm malignant [None]
  - Therapy interrupted [None]
